FAERS Safety Report 9507300 (Version 1)
Quarter: 2013Q1

REPORT INFORMATION
  Report Type: Spontaneous
  Country: US (occurrence: None)
  Receive Date: 20130305
  Receipt Date: 20130305
  Transmission Date: 20140127
  Serious: Yes (Other)
  Sender: FDA-Public Use
  Company Number: 163-21880-12113332

PATIENT
  Age: 80 Year
  Sex: Female

DRUGS (2)
  1. REVLIMID [Suspect]
     Indication: PLASMA CELL MYELOMA
     Dates: start: 201011
  2. CHEMOTHERAPY (CHEMOTHERAPEUTICS) [Concomitant]

REACTIONS (4)
  - General physical health deterioration [None]
  - Asthenia [None]
  - Fatigue [None]
  - Drug ineffective [None]
